FAERS Safety Report 15112586 (Version 1)
Quarter: 2018Q2

REPORT INFORMATION
  Report Type: Spontaneous
  Country: US (occurrence: US)
  Receive Date: 20180612
  Receipt Date: 20180612
  Transmission Date: 20180711
  Serious: Yes (Hospitalization)
  Sender: FDA-Public Use
  Company Number: None

PATIENT
  Age: 77 Year
  Sex: Male
  Weight: 91.6 kg

DRUGS (8)
  1. JANUMET [Suspect]
     Active Substance: METFORMIN HYDROCHLORIDE\SITAGLIPTIN PHOSPHATE
     Dosage: 50MG/500MG DAILY-CHRONIC
     Route: 048
  2. METFORMIN [Suspect]
     Active Substance: METFORMIN HYDROCHLORIDE
     Route: 048
  3. MOBIC [Concomitant]
     Active Substance: MELOXICAM
  4. AMARYL [Suspect]
     Active Substance: GLIMEPIRIDE
     Indication: DIABETES MELLITUS
     Dosage: CHRONIC
     Route: 048
  5. ECOTRIN [Concomitant]
     Active Substance: ASPIRIN
  6. TRAZODON [Concomitant]
     Active Substance: TRAZODONE HYDROCHLORIDE
  7. BYBSTOLIC [Concomitant]
  8. OMEGA3 [Concomitant]

REACTIONS (3)
  - Constipation [None]
  - Hypoglycaemia [None]
  - Urinary retention [None]

NARRATIVE: CASE EVENT DATE: 20180323
